FAERS Safety Report 10792959 (Version 1)
Quarter: 2015Q1

REPORT INFORMATION
  Report Type: Report from Study
  Country: FR (occurrence: FR)
  Receive Date: 20150213
  Receipt Date: 20150213
  Transmission Date: 20150721
  Serious: Yes (Other)
  Sender: FDA-Public Use
  Company Number: FR-ABBVIE-14K-056-1320847-00

PATIENT
  Age: 30 Year
  Sex: Female
  Weight: 55 kg

DRUGS (2)
  1. HUMIRA [Suspect]
     Active Substance: ADALIMUMAB
     Indication: RHEUMATOID ARTHRITIS
     Route: 065
     Dates: start: 20130719, end: 201412
  2. HUMIRA [Suspect]
     Active Substance: ADALIMUMAB
     Dosage: DOSE DECREASED
     Route: 065

REACTIONS (8)
  - Speech disorder [Unknown]
  - Malaise [Recovering/Resolving]
  - Vertigo [Recovering/Resolving]
  - Disorientation [Recovering/Resolving]
  - Headache [Unknown]
  - Fall [Recovering/Resolving]
  - Memory impairment [Recovering/Resolving]
  - Loss of consciousness [Unknown]

NARRATIVE: CASE EVENT DATE: 201408
